FAERS Safety Report 5224731-9 (Version None)
Quarter: 2007Q1

REPORT INFORMATION
  Report Type: 
  Country: None (occurrence: None)
  Receive Date: 20070129
  Receipt Date: 20070129
  Transmission Date: 20070707
  Serious: Yes (Life-Threatening, Hospitalization)
  Sender: FDA-Public Use
  Company Number: None

PATIENT
  Age: 76 Year
  Sex: Male
  Weight: 115.2 kg

DRUGS (13)
  1. WARFARIN SODIUM [Suspect]
     Indication: DEEP VEIN THROMBOSIS
     Dosage: 12.5MGMF, 5 MG TAB, ORAL
     Route: 048
     Dates: start: 20060620, end: 20070122
  2. POTASSIUM ACETATE [Concomitant]
  3. ASPIRIN 25MG/DIPYRIDAMOLE [Concomitant]
  4. GLYBURIDE [Concomitant]
  5. CAPTOPRIL [Concomitant]
  6. LOVASTATIN [Concomitant]
  7. METFORMIN HCL [Concomitant]
  8. CARBAMAZEPINE [Concomitant]
  9. METOPROLOL TARTRATE [Concomitant]
  10. FUROSEMIDE [Concomitant]
  11. CLOTRIMAZOLE [Concomitant]
  12. FELODIPINE [Concomitant]
  13. NITROGLYCERIN [Concomitant]

REACTIONS (1)
  - HAEMORRHAGE [None]
